FAERS Safety Report 5803397-0 (Version None)
Quarter: 2008Q3

REPORT INFORMATION
  Report Type: 
  Country: None (occurrence: None)
  Receive Date: 20080708
  Receipt Date: 20080627
  Transmission Date: 20090109
  Serious: Yes (Other)
  Sender: FDA-Public Use
  Company Number: IT-JNJFOC-20080701367

PATIENT
  Sex: Female

DRUGS (5)
  1. TOPIRAMATE [Suspect]
     Indication: EPILEPSY
  2. CARBAMAZEPINE [Suspect]
     Indication: EPILEPSY
  3. CLOBAZAM [Suspect]
     Indication: EPILEPSY
  4. PHENOBARBITAL TAB [Suspect]
     Indication: EPILEPSY
  5. PRIMIDONE [Suspect]
     Indication: EPILEPSY

REACTIONS (2)
  - ABORTION SPONTANEOUS [None]
  - DRUG EXPOSURE DURING PREGNANCY [None]
